FAERS Safety Report 20531081 (Version 6)
Quarter: 2023Q2

REPORT INFORMATION
  Report Type: Spontaneous
  Country: US (occurrence: US)
  Receive Date: 20220301
  Receipt Date: 20230502
  Transmission Date: 20230722
  Serious: Yes (Disabling, Other)
  Sender: FDA-Public Use
  Company Number: US-ORGANON-O2202USA002290

PATIENT
  Sex: Male

DRUGS (7)
  1. SINGULAIR [Suspect]
     Active Substance: MONTELUKAST SODIUM
     Indication: Asthma
     Dosage: CHEW AND SWALLOW ONE TABLET BY MOUTH EVERYDAY
     Route: 048
     Dates: start: 2006, end: 2012
  2. SINGULAIR [Suspect]
     Active Substance: MONTELUKAST SODIUM
     Dosage: 5 MG OR 10 MG TABLETS; CHEW AND SWALLOW ONE TABLET BY MOUTH EVERYDAY
     Route: 048
     Dates: start: 2006, end: 2008
  3. SINGULAIR [Suspect]
     Active Substance: MONTELUKAST SODIUM
     Dosage: 5 MG OR 10 MG TABLETS
     Route: 048
     Dates: start: 2008, end: 2009
  4. SINGULAIR [Suspect]
     Active Substance: MONTELUKAST SODIUM
     Dosage: 5 MG OR 10 MG TABLETS
     Route: 048
     Dates: start: 2009, end: 2011
  5. SINGULAIR [Suspect]
     Active Substance: MONTELUKAST SODIUM
     Dosage: 5 MG OR 10 MG TABLETS
     Route: 048
     Dates: start: 2011, end: 2015
  6. SINGULAIR [Suspect]
     Active Substance: MONTELUKAST SODIUM
     Dosage: TAKE ONE TABLET BY MOUTH DAILY IN THE EVENING
     Route: 048
  7. SINGULAIR [Suspect]
     Active Substance: MONTELUKAST SODIUM
     Dosage: 1 TABLET BY MOUTH EVERYDAY
     Route: 048

REACTIONS (24)
  - Neuropsychiatric symptoms [Not Recovered/Not Resolved]
  - Major depression [Recovered/Resolved]
  - Bipolar disorder [Not Recovered/Not Resolved]
  - Obsessive-compulsive disorder [Not Recovered/Not Resolved]
  - Dysphemia [Not Recovered/Not Resolved]
  - Hallucination [Recovered/Resolved]
  - Suicidal ideation [Unknown]
  - Intentional self-injury [Unknown]
  - Major depression [Unknown]
  - Drug abuse [Unknown]
  - Sleep disorder [Unknown]
  - Nightmare [Unknown]
  - Anxiety [Recovered/Resolved]
  - Aggression [Unknown]
  - Homicidal ideation [Unknown]
  - Emotional distress [Unknown]
  - Decreased activity [Unknown]
  - Generalised anxiety disorder [Unknown]
  - Vitamin D deficiency [Unknown]
  - Asthma [Unknown]
  - Rhinitis allergic [Unknown]
  - Gastrooesophageal reflux disease [Unknown]
  - Delayed sleep phase [Unknown]
  - Palpitations [Unknown]

NARRATIVE: CASE EVENT DATE: 20100101
